FAERS Safety Report 8573834-X (Version None)
Quarter: 2012Q3

REPORT INFORMATION
  Report Type: 
  Country: None (occurrence: None)
  Receive Date: 20120806
  Receipt Date: 20110913
  Transmission Date: 20120928
  Serious: No
  Sender: FDA-Public Use
  Company Number: US-GLAXOSMITHKLINE-A0944471A

PATIENT
  Age: 81 Year
  Sex: Female

DRUGS (4)
  1. ALBUTEROL [Concomitant]
  2. FLUTICASONE PROPIONATE [Suspect]
     Indication: ASTHMA
     Dosage: 1PUFF TWICE PER DAY
     Route: 055
     Dates: start: 20100801, end: 20110501
  3. FLOVENT [Suspect]
     Indication: ASTHMA
     Dosage: 1SPR TWICE PER DAY
     Route: 055
     Dates: start: 20110301, end: 20110401
  4. FLOVENT [Suspect]
     Route: 055
     Dates: start: 20110401, end: 20110501

REACTIONS (4)
  - FATIGUE [None]
  - OEDEMA PERIPHERAL [None]
  - TACHYPNOEA [None]
  - DYSPNOEA [None]
